FAERS Safety Report 6304942-1 (Version None)
Quarter: 2009Q3

REPORT INFORMATION
  Report Type: 
  Country: None (occurrence: None)
  Receive Date: 20090803
  Receipt Date: 20090609
  Transmission Date: 20100115
  Serious: Yes (Hospitalization)
  Sender: FDA-Public Use
  Company Number: 197751USA

PATIENT

DRUGS (1)
  1. EPOPROSTENOL SODIUM [Suspect]

REACTIONS (4)
  - ACTIVITIES OF DAILY LIVING IMPAIRED [None]
  - CHEST DISCOMFORT [None]
  - DYSPNOEA [None]
  - EXERCISE TOLERANCE DECREASED [None]
